FAERS Safety Report 9027310 (Version 5)
Quarter: 2013Q2

REPORT INFORMATION
  Report Type: Spontaneous
  Country: US (occurrence: US)
  Receive Date: 20130123
  Receipt Date: 20130621
  Transmission Date: 20140414
  Serious: No
  Sender: FDA-Public Use
  Company Number: US-009507513-1301USA008950

PATIENT
  Sex: Female
  Weight: 61.68 kg

DRUGS (2)
  1. IMPLANON [Suspect]
     Indication: CONTRACEPTION
     Dosage: UNK
     Route: 059
     Dates: start: 20111201
  2. VITAMINS (UNSPECIFIED) [Concomitant]
     Dosage: UNK, QD
     Route: 048
     Dates: start: 20121221

REACTIONS (4)
  - Device difficult to use [Unknown]
  - Drug dose omission [Unknown]
  - Medical device complication [Unknown]
  - Exposure during pregnancy [Unknown]
